FAERS Safety Report 7641150-6 (Version None)
Quarter: 2011Q3

REPORT INFORMATION
  Report Type: 
  Country: None (occurrence: None)
  Receive Date: 20110728
  Receipt Date: 20110713
  Transmission Date: 20111222
  Serious: Yes (Other)
  Sender: FDA-Public Use
  Company Number: PHHY2011US63064

PATIENT
  Sex: Female

DRUGS (9)
  1. LIPITOR [Concomitant]
     Dosage: 40 MG, UNK
  2. BUPROPION HCL [Concomitant]
     Dosage: 300 MG, UNK
  3. AMBIEN [Concomitant]
     Dosage: UNK UKN, UNK
  4. NEXIUM [Concomitant]
     Dosage: UNK UKN, UNK
  5. DIOVAN [Suspect]
     Indication: RENAL FAILURE CHRONIC
     Dosage: 1 DF, QD
  6. XANAX [Concomitant]
     Dosage: UNK UKN, UNK
  7. CYMBALTA [Concomitant]
     Dosage: 60 MG, UNK
  8. VERAPAMIL [Concomitant]
     Dosage: UNK UKN, UNK
  9. SYNTHROID [Concomitant]
     Dosage: UNK UKN, UNK

REACTIONS (10)
  - EMOTIONAL DISORDER [None]
  - CRYING [None]
  - FEELING ABNORMAL [None]
  - MENTAL DISORDER [None]
  - ABDOMINAL DISCOMFORT [None]
  - DIZZINESS [None]
  - FATIGUE [None]
  - DEPRESSION [None]
  - BALANCE DISORDER [None]
  - SOCIAL AVOIDANT BEHAVIOUR [None]
